FAERS Safety Report 12629200 (Version 1)
Quarter: 2016Q3

REPORT INFORMATION
  Report Type: Spontaneous
  Country: US (occurrence: None)
  Receive Date: 20160805
  Receipt Date: 20160805
  Transmission Date: 20161109
  Serious: No
  Sender: FDA-Public Use
  Company Number: None

PATIENT
  Age: 82 Year
  Sex: Male
  Weight: 95.9 kg

DRUGS (1)
  1. INSULIN [Suspect]
     Active Substance: INSULIN NOS
     Indication: DIABETES MELLITUS
     Dosage: 28 UNITS AT BEDTIME SQ
     Route: 058
     Dates: start: 20120801

REACTIONS (2)
  - Extra dose administered [None]
  - Hypoglycaemia [None]

NARRATIVE: CASE EVENT DATE: 20160703
